FAERS Safety Report 6517408-0 (Version None)
Quarter: 2009Q4

REPORT INFORMATION
  Report Type: 
  Country: None (occurrence: None)
  Receive Date: 20091224
  Receipt Date: 20091215
  Transmission Date: 20100525
  Serious: Yes (Other)
  Sender: FDA-Public Use
  Company Number: US-BIOGENIDEC-2009BI010610

PATIENT
  Age: 32 Year
  Sex: Male

DRUGS (3)
  1. TYSABRI [Suspect]
     Indication: MULTIPLE SCLEROSIS
     Route: 042
     Dates: start: 20061107, end: 20091123
  2. STEROIDS [Concomitant]
     Dates: start: 20090329
  3. STEROIDS [Concomitant]
     Dates: start: 20080701

REACTIONS (1)
  - PULMONARY TUBERCULOSIS [None]
